FAERS Safety Report 16314211 (Version 4)
Quarter: 2020Q3

REPORT INFORMATION
  Report Type: Spontaneous
  Country: FR (occurrence: FR)
  Receive Date: 20190515
  Receipt Date: 20200813
  Transmission Date: 20201102
  Serious: Yes (Hospitalization, Other)
  Sender: FDA-Public Use
  Company Number: FR-009507513-1905FRA004298

PATIENT
  Age: 38 Year
  Sex: Female
  Weight: 45 kg

DRUGS (5)
  1. RIFABUTIN. [Suspect]
     Active Substance: RIFABUTIN
     Dosage: UNK
     Dates: start: 20190306
  2. ISENTRESS [Suspect]
     Active Substance: RALTEGRAVIR POTASSIUM
     Dosage: 400 MG, 2 TABLETS DAILY
     Route: 048
     Dates: start: 20190313
  3. ISENTRESS [Suspect]
     Active Substance: RALTEGRAVIR POTASSIUM
     Dosage: UNK
     Route: 048
     Dates: start: 201912
  4. CLARITHROMYCIN. [Suspect]
     Active Substance: CLARITHROMYCIN
     Dosage: UNK
     Dates: start: 201905, end: 201912
  5. BACTRIM [Suspect]
     Active Substance: SULFAMETHOXAZOLE\TRIMETHOPRIM
     Dosage: UNK

REACTIONS (10)
  - Adrenal insufficiency [Unknown]
  - Drug resistance [Unknown]
  - Cytopenia [Recovering/Resolving]
  - Disseminated mycobacterium avium complex infection [Unknown]
  - Congestive cardiomyopathy [Unknown]
  - Cholestasis [Recovering/Resolving]
  - Malnutrition [Unknown]
  - Gastritis haemorrhagic [Unknown]
  - Gynaecological chlamydia infection [Unknown]
  - Hepatitis [Unknown]

NARRATIVE: CASE EVENT DATE: 201903
